FAERS Safety Report 5326074-1 (Version None)
Quarter: 2007Q2

REPORT INFORMATION
  Report Type: 
  Country: None (occurrence: None)
  Receive Date: 20070516
  Receipt Date: 20070512
  Transmission Date: 20071010
  Serious: Yes (Hospitalization)
  Sender: FDA-Public Use
  Company Number: US-BAYER-200711500BCC

PATIENT
  Age: 49 Year
  Sex: Female
  Weight: 73 kg

DRUGS (2)
  1. NEO SYNEPHRINE NASAL SPRAY [Suspect]
     Indication: SINUS DISORDER
     Route: 045
     Dates: start: 20070512
  2. ATENOLOL [Concomitant]

REACTIONS (1)
  - DYSPNOEA [None]
